FAERS Safety Report 14200504 (Version 1)
Quarter: 2017Q4

REPORT INFORMATION
  Report Type: Spontaneous
  Country: IN (occurrence: IN)
  Receive Date: 20171117
  Receipt Date: 20171117
  Transmission Date: 20180321
  Serious: Yes (Death, Other)
  Sender: FDA-Public Use
  Company Number: IN-CELGENEUS-IND-20171102480

PATIENT

DRUGS (3)
  1. REVLIMID [Suspect]
     Active Substance: LENALIDOMIDE
     Indication: PLASMA CELL MYELOMA
     Dosage: 25 MILLIGRAM
     Route: 048
  2. ACETYLSALICYLIC ACID [Concomitant]
     Active Substance: ASPIRIN
     Indication: THROMBOSIS PROPHYLAXIS
     Route: 065
  3. DEXAMETHASONE. [Suspect]
     Active Substance: DEXAMETHASONE
     Indication: PLASMA CELL MYELOMA
     Dosage: 40 MILLIGRAM
     Route: 048

REACTIONS (18)
  - Pulmonary embolism [Unknown]
  - Hypocalcaemia [Unknown]
  - Dyspepsia [Unknown]
  - Completed suicide [Fatal]
  - Agitation [Unknown]
  - Colon cancer [Fatal]
  - Fatigue [Unknown]
  - Accident at home [Fatal]
  - Disease progression [Fatal]
  - Hyperglycaemia [Unknown]
  - Anxiety [Unknown]
  - Death [Fatal]
  - Respiratory tract infection [Unknown]
  - Decreased appetite [Unknown]
  - Constipation [Unknown]
  - Rash [Unknown]
  - Nausea [Unknown]
  - Stomatitis [Unknown]
